FAERS Safety Report 10893264 (Version 4)
Quarter: 2015Q3

REPORT INFORMATION
  Report Type: Spontaneous
  Country: BR (occurrence: BR)
  Receive Date: 20150306
  Receipt Date: 20150708
  Transmission Date: 20151125
  Serious: Yes (Hospitalization, Other)
  Sender: FDA-Public Use
  Company Number: BR-ELI_LILLY_AND_COMPANY-BR201502008097

PATIENT
  Age: 65 Year
  Sex: Male
  Weight: 75 kg

DRUGS (3)
  1. GALVUSMET [Concomitant]
     Indication: DIABETES PROPHYLAXIS
     Dosage: UNK, UNKNOWN
     Route: 065
  2. AAS [Concomitant]
     Active Substance: ASPIRIN
     Dosage: UNK, AFTER MEALS
     Route: 065
  3. AXIRON [Suspect]
     Active Substance: TESTOSTERONE
     Indication: HYPOGONADISM
     Dosage: 60 MG, QD
     Route: 061
     Dates: start: 20150211, end: 20150222

REACTIONS (3)
  - Malaise [Unknown]
  - Coronary artery occlusion [Recovered/Resolved]
  - Hypertension [Not Recovered/Not Resolved]

NARRATIVE: CASE EVENT DATE: 20150212
